FAERS Safety Report 5034882-X (Version None)
Quarter: 2006Q2

REPORT INFORMATION
  Report Type: 
  Country: None (occurrence: None)
  Receive Date: 20060519
  Receipt Date: 20060303
  Transmission Date: 20061013
  Serious: No
  Sender: FDA-Public Use
  Company Number: ZONI002280

PATIENT
  Age: 2 Year
  Sex: Male

DRUGS (3)
  1. ZONEGRAN [Suspect]
     Indication: EPILEPSY
     Dosage: ORAL
     Route: 048
     Dates: start: 20060101, end: 20060302
  2. LAMICTAL [Concomitant]
  3. PHENOBARBITAL TAB [Concomitant]

REACTIONS (1)
  - PANCREATITIS [None]
